FAERS Safety Report 8387469-5 (Version None)
Quarter: 2012Q2

REPORT INFORMATION
  Report Type: 
  Country: None (occurrence: None)
  Receive Date: 20120525
  Receipt Date: 20120521
  Transmission Date: 20120825
  Serious: Yes (Other)
  Sender: FDA-Public Use
  Company Number: PHEH2012US002960

PATIENT
  Sex: Female
  Weight: 70.295 kg

DRUGS (4)
  1. NEURONTIN [Concomitant]
     Indication: PAIN
     Dosage: 300 MG, BID
     Route: 048
     Dates: start: 20100301
  2. GILENYA [Suspect]
     Indication: MULTIPLE SCLEROSIS
     Dosage: 0.5 MG, QD
     Route: 048
     Dates: start: 20120110, end: 20120222
  3. MULTI-VITAMINS [Concomitant]
     Dosage: 1 DF, QD
     Route: 048
     Dates: start: 20100301
  4. CYMBALTA [Concomitant]
     Dosage: 60 MG, QD
     Route: 048
     Dates: start: 20100301

REACTIONS (3)
  - ABDOMINAL DISCOMFORT [None]
  - CHOLECYSTITIS [None]
  - ABDOMINAL PAIN UPPER [None]
